FAERS Safety Report 11792943 (Version 1)
Quarter: 2015Q4

REPORT INFORMATION
  Report Type: Spontaneous
  Country: US (occurrence: US)
  Receive Date: 20151202
  Receipt Date: 20151202
  Transmission Date: 20160305
  Serious: Yes (Life-Threatening)
  Sender: FDA-Public Use
  Company Number: US-FRESENIUS KABI-FK201506163

PATIENT
  Age: 47 Year
  Sex: Female

DRUGS (1)
  1. HEPARIN (MANUFACTURER UNKNOWN) [Suspect]
     Active Substance: HEPARIN SODIUM
     Indication: DEEP VEIN THROMBOSIS
     Route: 065

REACTIONS (2)
  - Cardiac tamponade [Unknown]
  - Pericardial haemorrhage [Unknown]
